FAERS Safety Report 8934118 (Version 1)
Quarter: 2012Q4

REPORT INFORMATION
  Report Type: 
  Country: US (occurrence: US)
  Receive Date: 20121129
  Receipt Date: 20121129
  Transmission Date: 20130627
  Serious: No
  Sender: FDA-Public Use
  Company Number: US-GLAXOSMITHKLINE-A0968403A

PATIENT
  Age: 53 Year
  Sex: Female

DRUGS (6)
  1. WELLBUTRIN SR [Suspect]
     Indication: HEAD INJURY
     Dosage: 100MG Per day
     Route: 048
     Dates: end: 20120220
  2. TOPAMAX [Concomitant]
  3. TEGRETOL [Concomitant]
  4. KLONOPIN [Concomitant]
  5. MYSOLINE [Concomitant]
  6. SYNTHROID [Concomitant]

REACTIONS (5)
  - Balance disorder [Recovered/Resolved]
  - Gait disturbance [Unknown]
  - Headache [Unknown]
  - Medication error [Unknown]
  - Overdose [Unknown]
